FAERS Safety Report 17546275 (Version 1)
Quarter: 2020Q1

REPORT INFORMATION
  Report Type: Spontaneous
  Country: NO (occurrence: NO)
  Receive Date: 20200316
  Receipt Date: 20200316
  Transmission Date: 20200409
  Serious: No
  Sender: FDA-Public Use
  Company Number: NO-EMD SERONO-E2B_90075525

PATIENT
  Age: 53 Year
  Sex: Female

DRUGS (2)
  1. MAVENCLAD [Suspect]
     Active Substance: CLADRIBINE
     Dosage: SECOND ROUND TREATMENT.
     Route: 048
     Dates: end: 20190921
  2. MAVENCLAD [Suspect]
     Active Substance: CLADRIBINE
     Indication: MULTIPLE SCLEROSIS
     Dosage: FIRST ROUND TREATMENT.
     Route: 048
     Dates: start: 20190828

REACTIONS (1)
  - Gastroenteritis eosinophilic [Recovering/Resolving]
